FAERS Safety Report 4392071-6 (Version None)
Quarter: 2004Q3

REPORT INFORMATION
  Report Type: 
  Country: None (occurrence: None)
  Receive Date: 20040702
  Receipt Date: 20040621
  Transmission Date: 20050211
  Serious: Yes (Other)
  Sender: FDA-Public Use
  Company Number: 2004031347

PATIENT
  Age: 55 Year
  Sex: Male
  Weight: 149.687 kg

DRUGS (8)
  1. ZITHROMAX [Suspect]
     Indication: PYREXIA
     Dosage: 250 MG (250 MG, DAILY) ORAL
     Route: 048
     Dates: start: 20040428, end: 20040501
  2. ZITHROMAX [Suspect]
     Indication: STENT REMOVAL
     Dosage: 250 MG (250 MG, DAILY) ORAL
     Route: 048
     Dates: start: 20040428, end: 20040501
  3. METFORMIN HCL [Concomitant]
  4. ALLOPURINOL [Concomitant]
  5. GLYBURIDE [Concomitant]
  6. VALSARTAN [Concomitant]
  7. METOPROLOL [Concomitant]
  8. LOSARTAN POTASSIUM [Concomitant]

REACTIONS (3)
  - DYSGEUSIA [None]
  - EATING DISORDER [None]
  - WEIGHT DECREASED [None]
